FAERS Safety Report 8839222 (Version 1)
Quarter: 2012Q4

REPORT INFORMATION
  Report Type: 
  Country: SE (occurrence: SE)
  Receive Date: 20121015
  Receipt Date: 20121015
  Transmission Date: 20130627
  Serious: Yes (Hospitalization, Other)
  Sender: FDA-Public Use
  Company Number: SE-BAYER-2012-107119

PATIENT
  Age: 83 Year
  Sex: Female

DRUGS (6)
  1. CIPROXIN [Suspect]
     Indication: URINARY TRACT INFECTION
     Dosage: 1 g, UNK
     Route: 048
     Dates: start: 20120512
  2. WARAN [Interacting]
     Indication: ATRIAL FIBRILLATION
     Dosage: 2.5 mg, UNK
     Route: 048
  3. LEUPROLIDE ACE [Concomitant]
     Dosage: 11.25 mg, UNK
  4. FESOTERODINE [Concomitant]
     Dosage: 4 mg, UNK
  5. FENURIL [UREA] [Concomitant]
  6. ATENOLOL [Concomitant]

REACTIONS (1)
  - Haemorrhage [Recovered/Resolved]
